FAERS Safety Report 7978542-1 (Version None)
Quarter: 2011Q4

REPORT INFORMATION
  Report Type: 
  Country: None (occurrence: None)
  Receive Date: 20111214
  Receipt Date: 20111206
  Transmission Date: 20120403
  Serious: Yes (Other)
  Sender: FDA-Public Use
  Company Number: US-JNJFOC-20111202895

PATIENT
  Sex: Female
  Weight: 83.01 kg

DRUGS (2)
  1. DURAGESIC-100 [Suspect]
     Indication: PAIN
     Route: 062
     Dates: start: 20110101
  2. DURAGESIC-100 [Suspect]
     Route: 062
     Dates: start: 20110101

REACTIONS (6)
  - PAIN [None]
  - DERMATITIS CONTACT [None]
  - THERAPEUTIC RESPONSE DECREASED [None]
  - WRONG TECHNIQUE IN DRUG USAGE PROCESS [None]
  - PRODUCT QUALITY ISSUE [None]
  - BRAIN HYPOXIA [None]
